FAERS Safety Report 24902609 (Version 1)
Quarter: 2025Q1

REPORT INFORMATION
  Report Type: Spontaneous
  Country: US (occurrence: US)
  Receive Date: 20250130
  Receipt Date: 20250130
  Transmission Date: 20250408
  Serious: No
  Sender: ROCHE
  Company Number: US-ROCHE-10000191147

PATIENT
  Sex: Male

DRUGS (1)
  1. ALECENSA [Suspect]
     Active Substance: ALECTINIB HYDROCHLORIDE
     Indication: Pulmonary mass
     Route: 048
     Dates: start: 202410

REACTIONS (5)
  - Off label use [Unknown]
  - Abdominal distension [Unknown]
  - Stoma site haemorrhage [Unknown]
  - Rhinorrhoea [Unknown]
  - Nasal congestion [Unknown]
